FAERS Safety Report 15769885 (Version 1)
Quarter: 2018Q4

REPORT INFORMATION
  Report Type: Spontaneous
  Country: US (occurrence: US)
  Receive Date: 20181227
  Receipt Date: 20181227
  Transmission Date: 20190205
  Serious: Yes (Disabling)
  Sender: FDA-Public Use
  Company Number: None

PATIENT
  Age: 67 Year
  Sex: Female

DRUGS (1)
  1. VALSARTAN 320 MG [Suspect]
     Active Substance: VALSARTAN
     Indication: HYPERTENSION
     Dosage: ?          QUANTITY:0.5 TABLET(S);?
     Route: 048

REACTIONS (3)
  - Urticaria chronic [None]
  - Rash [None]
  - Product contamination [None]

NARRATIVE: CASE EVENT DATE: 20160115
